FAERS Safety Report 22844614 (Version 2)
Quarter: 2025Q1

REPORT INFORMATION
  Report Type: Spontaneous
  Country: US (occurrence: US)
  Receive Date: 20230821
  Receipt Date: 20250204
  Transmission Date: 20250408
  Serious: No
  Sender: SANOFI AVENTIS
  Company Number: US-SA-SAC20230816000864

PATIENT
  Sex: Female
  Weight: 99.5 kg

DRUGS (12)
  1. DUPIXENT [Suspect]
     Active Substance: DUPILUMAB
     Indication: Dermatitis atopic
     Dosage: 300 MG, QOW
     Route: 058
     Dates: start: 202004
  2. ELIQUIS [Concomitant]
     Active Substance: APIXABAN
  3. IRON [Concomitant]
     Active Substance: IRON
  4. MODAFINIL [Concomitant]
     Active Substance: MODAFINIL
  5. OMEPRAZOLE [Concomitant]
     Active Substance: OMEPRAZOLE
  6. VALACYCLOVIR [Concomitant]
     Active Substance: VALACYCLOVIR HYDROCHLORIDE
  7. ZOLOFT [Concomitant]
     Active Substance: SERTRALINE HYDROCHLORIDE
  8. ATORVASTATIN CALCIUM [Concomitant]
     Active Substance: ATORVASTATIN CALCIUM
  9. COVID-19 VACCINE [Concomitant]
     Indication: Immunisation
  10. LINEZOLID [Concomitant]
     Active Substance: LINEZOLID
  11. MUPIROCIN [Concomitant]
     Active Substance: MUPIROCIN
  12. SERTRALINE [Concomitant]
     Active Substance: SERTRALINE HYDROCHLORIDE

REACTIONS (1)
  - Injection site pain [Not Recovered/Not Resolved]
